FAERS Safety Report 6256026-9 (Version None)
Quarter: 2009Q2

REPORT INFORMATION
  Report Type: 
  Country: None (occurrence: None)
  Receive Date: 20090630
  Receipt Date: 20090630
  Transmission Date: 20091009
  Serious: Yes (Hospitalization)
  Sender: FDA-Public Use
  Company Number: None

PATIENT
  Age: 63 Year
  Sex: Female

DRUGS (1)
  1. COUMADIN [Suspect]
     Indication: DEEP VEIN THROMBOSIS
     Dosage: NOT DOCUMENTED
     Dates: start: 20090501, end: 20090521

REACTIONS (9)
  - BLOOD CREATININE INCREASED [None]
  - EPISTAXIS [None]
  - FATIGUE [None]
  - HAEMATURIA [None]
  - HAEMOPTYSIS [None]
  - INFECTION [None]
  - INTERNATIONAL NORMALISED RATIO INCREASED [None]
  - RENAL INJURY [None]
  - SEPSIS [None]
